FAERS Safety Report 17031193 (Version 4)
Quarter: 2020Q1

REPORT INFORMATION
  Report Type: Spontaneous
  Country: US (occurrence: US)
  Receive Date: 20191114
  Receipt Date: 20200103
  Transmission Date: 20200409
  Serious: No
  Sender: FDA-Public Use
  Company Number: US-PFIZER INC-2019486599

PATIENT
  Age: 91 Year
  Sex: Female
  Weight: 59.82 kg

DRUGS (2)
  1. DILANTIN [Suspect]
     Active Substance: PHENYTOIN
     Dosage: 100 MG, 2X/DAY
  2. DILANTIN [Suspect]
     Active Substance: PHENYTOIN
     Indication: SEIZURE
     Dosage: 200 MG, 2X/DAY (100 MG; TOOK TWO IN MORNING AND TWO AT NIGHT)
     Route: 048

REACTIONS (9)
  - Ear pain [Unknown]
  - Ear disorder [Unknown]
  - Fall [Unknown]
  - Dizziness [Not Recovered/Not Resolved]
  - Gait disturbance [Recovering/Resolving]
  - Excessive cerumen production [Recovered/Resolved]
  - Tremor [Unknown]
  - Eye disorder [Not Recovered/Not Resolved]
  - Vision blurred [Not Recovered/Not Resolved]

NARRATIVE: CASE EVENT DATE: 201910
